FAERS Safety Report 6017360-0 (Version None)
Quarter: 2008Q4

REPORT INFORMATION
  Report Type: 
  Country: None (occurrence: None)
  Receive Date: 20081223
  Receipt Date: 20081215
  Transmission Date: 20090506
  Serious: Yes (Life-Threatening, Hospitalization)
  Sender: FDA-Public Use
  Company Number: FR-BAYER-200832929GPV

PATIENT
  Age: 56 Year
  Sex: Female

DRUGS (2)
  1. NEXAVAR [Suspect]
     Indication: HEPATIC NEOPLASM MALIGNANT
     Route: 065
  2. PREVISCAN [Concomitant]
     Indication: THROMBOSIS MESENTERIC VESSEL
     Route: 065

REACTIONS (1)
  - HAEMORRHAGIC STROKE [None]
